FAERS Safety Report 20372237 (Version 1)
Quarter: 2022Q1

REPORT INFORMATION
  Report Type: Spontaneous
  Country: JP (occurrence: JP)
  Receive Date: 20220124
  Receipt Date: 20220124
  Transmission Date: 20220423
  Serious: Yes (Other)
  Sender: FDA-Public Use
  Company Number: JP-NOVARTISPH-NVSJ2022JP001808

PATIENT
  Sex: Male

DRUGS (2)
  1. GILENYA [Suspect]
     Active Substance: FINGOLIMOD HYDROCHLORIDE
     Indication: Multiple sclerosis
     Dosage: 0.5 MG, INTERMITTENT PRESCRIPTION OF 1 CAPSULE EVERY 6 DAYS
     Route: 048
  2. GILENYA [Suspect]
     Active Substance: FINGOLIMOD HYDROCHLORIDE
     Dosage: 0.5 MG, INTERMITTENT PRESCRIPTION OF 1 CAPSULE EVERY 6 DAYS
     Route: 048

REACTIONS (3)
  - Cellulitis [Recovered/Resolved]
  - Cellulitis [Recovered/Resolved]
  - Prescribed underdose [Unknown]
